FAERS Safety Report 17425695 (Version 3)
Quarter: 2020Q1

REPORT INFORMATION
  Report Type: Report from Study
  Country: JP (occurrence: JP)
  Receive Date: 20200217
  Receipt Date: 20200228
  Transmission Date: 20200409
  Serious: Yes (Hospitalization)
  Sender: FDA-Public Use
  Company Number: JP-ROCHE-2517739

PATIENT
  Age: 70 Year
  Sex: Male
  Weight: 48.5 kg

DRUGS (30)
  1. PRAVASTATIN NA [Concomitant]
     Active Substance: PRAVASTATIN SODIUM
     Indication: DYSLIPIDAEMIA
     Dosage: ADMINISTRATION START DATE: BEFORE STUDY PARTICIPATION
     Route: 048
  2. OXYCONTIN TR [Concomitant]
     Active Substance: OXYCODONE HYDROCHLORIDE
     Indication: CANCER PAIN
     Dosage: ADMINISTRATION START DATE: BEFORE STUDY PARTICIPATION
     Route: 048
  3. CARBOPLATIN. [Suspect]
     Active Substance: CARBOPLATIN
     Indication: NON-SMALL CELL LUNG CANCER
     Route: 041
     Dates: start: 20191203, end: 20200121
  4. BESOFTEN [Concomitant]
     Active Substance: PENTOSAN POLYSULFATE SODIUM
     Indication: ASTEATOSIS
     Dosage: TOPICAL, DOSAGE UNKNOWN
     Route: 061
     Dates: start: 20191228
  5. FENTOS [Concomitant]
     Active Substance: FENTANYL
     Route: 061
     Dates: start: 20200125
  6. ATEZOLIZUMAB. [Suspect]
     Active Substance: ATEZOLIZUMAB
     Indication: NON-SMALL CELL LUNG CANCER
     Route: 041
     Dates: start: 20191203, end: 20200121
  7. ESOMEPRAZOLE. [Concomitant]
     Active Substance: ESOMEPRAZOLE MAGNESIUM
     Indication: GASTROOESOPHAGEAL REFLUX DISEASE
     Dosage: ADMINISTRATION START DATE: BEFORE STUDY PARTICIPATION
     Route: 048
  8. MAGNESIUM OXIDE. [Concomitant]
     Active Substance: MAGNESIUM OXIDE
     Indication: CONSTIPATION
     Dosage: ADMINISTRATION START DATE: BEFORE STUDY PARTICIPATION
     Route: 048
  9. FRESMIN S [HYDROXOCOBALAMIN] [Concomitant]
     Indication: PROPHYLAXIS
     Dosage: ONCE 1A
     Route: 030
  10. FENTOS [Concomitant]
     Active Substance: FENTANYL
     Route: 061
     Dates: start: 20200126
  11. ALIMTA [Suspect]
     Active Substance: PEMETREXED DISODIUM
     Indication: NON-SMALL CELL LUNG CANCER
     Route: 041
     Dates: start: 20191203, end: 20200121
  12. OXYCONTIN TR [Concomitant]
     Active Substance: OXYCODONE HYDROCHLORIDE
     Dosage: ADMINISTRATION START DATE: BEFORE STUDY PARTICIPATION
     Route: 048
  13. BESOFTEN [Concomitant]
     Active Substance: PENTOSAN POLYSULFATE SODIUM
     Route: 003
  14. FENTOS [Concomitant]
     Active Substance: FENTANYL
     Indication: CANCER PAIN
     Dosage: SPREADING AND THE BEGINNING OF DOSAGE DAY: BEFORE IT PARTICIPATES IN THE TRIAL
     Route: 061
  15. FENTOS [Concomitant]
     Active Substance: FENTANYL
     Route: 065
     Dates: start: 20200127
  16. OXYCONTIN TR [Concomitant]
     Active Substance: OXYCODONE HYDROCHLORIDE
     Route: 048
     Dates: start: 20200125
  17. OXINORM [OXYCODONE HYDROCHLORIDE] [Concomitant]
     Active Substance: OXYCODONE HYDROCHLORIDE
     Indication: CANCER PAIN
     Dosage: SINGLE USE, ADMINISTRATION START DATE: BEFORE STUDY PARTICIPATION
     Route: 048
  18. METOCLOPRAMIDE. [Concomitant]
     Active Substance: METOCLOPRAMIDE
     Indication: NAUSEA
     Dosage: SINGLE USE
     Route: 048
     Dates: start: 20191225
  19. BEVACIZUMAB. [Suspect]
     Active Substance: BEVACIZUMAB
     Indication: NON-SMALL CELL LUNG CANCER
     Route: 041
     Dates: start: 20191203, end: 20200121
  20. BROTIZOLAM [Concomitant]
     Active Substance: BROTIZOLAM
     Indication: INSOMNIA
     Dosage: ADMINISTRATION START DATE: BEFORE STUDY PARTICIPATION
     Route: 048
  21. REFLEX [Concomitant]
     Active Substance: MIRTAZAPINE
     Indication: CANCER PAIN
     Dosage: ADMINISTRATION START DATE: BEFORE STUDY PARTICIPATION
     Route: 048
  22. MIYA-BM [Concomitant]
     Active Substance: CLOSTRIDIUM BUTYRICUM SPORES STRAIN M-55
     Indication: CONSTIPATION
     Route: 048
  23. NOVAMIN [PROCHLORPERAZINE] [Concomitant]
     Active Substance: PROCHLORPERAZINE
     Indication: NAUSEA
     Route: 048
  24. ESOMEPRAZOLE. [Concomitant]
     Active Substance: ESOMEPRAZOLE MAGNESIUM
     Route: 048
  25. CALONAL [Concomitant]
     Active Substance: ACETAMINOPHEN
     Indication: CANCER PAIN
     Dosage: ADMINISTRATION START DATE: BEFORE STUDY PARTICIPATION
     Route: 048
  26. FLUNITRAZEPAM [Concomitant]
     Active Substance: FLUNITRAZEPAM
     Indication: INSOMNIA
     Dosage: ADMINISTRATION START DATE: BEFORE STUDY PARTICIPATION
     Route: 048
  27. LOXOPROFEN [Concomitant]
     Active Substance: LOXOPROFEN
     Indication: CANCER PAIN
     Route: 048
     Dates: start: 20191225
  28. OXYCONTIN TR [Concomitant]
     Active Substance: OXYCODONE HYDROCHLORIDE
     Route: 048
     Dates: start: 20200126
  29. OXINORM [OXYCODONE HYDROCHLORIDE] [Concomitant]
     Active Substance: OXYCODONE HYDROCHLORIDE
     Dosage: AS REQUIRED
     Route: 048
  30. DENOSUMAB [Concomitant]
     Active Substance: DENOSUMAB

REACTIONS (2)
  - Pneumonia [Recovered/Resolved]
  - Musculoskeletal pain [Not Recovered/Not Resolved]

NARRATIVE: CASE EVENT DATE: 20191230
